FAERS Safety Report 9593097 (Version 2)
Quarter: 2013Q4

REPORT INFORMATION
  Report Type: Spontaneous
  Country: CH (occurrence: CH)
  Receive Date: 20131004
  Receipt Date: 20131218
  Transmission Date: 20140711
  Serious: Yes (Hospitalization, Disabling, Other)
  Sender: FDA-Public Use
  Company Number: CH-ACTELION-A-CH2013-89018

PATIENT
  Age: 10 Year
  Sex: Female
  Weight: 20 kg

DRUGS (5)
  1. TRACLEER [Suspect]
     Indication: PULMONARY ARTERIAL HYPERTENSION
     Dosage: 31.25 MG, BID
     Route: 048
  2. SILDENAFIL [Suspect]
  3. FE [Suspect]
  4. CARVEDILOL [Concomitant]
  5. MARCOUMAR [Concomitant]

REACTIONS (3)
  - Bone cancer [Unknown]
  - Vein wall hypertrophy [Unknown]
  - Haemangioma of bone [Recovered/Resolved with Sequelae]
